FAERS Safety Report 13433279 (Version 2)
Quarter: 2018Q3

REPORT INFORMATION
  Report Type: Spontaneous
  Country: FR (occurrence: FR)
  Receive Date: 20170412
  Receipt Date: 20180808
  Transmission Date: 20181010
  Serious: Yes (Hospitalization)
  Sender: FDA-Public Use
  Company Number: FR-INDIVIOR LIMITED-INDV-100318-2017

PATIENT
  Age: 46 Year
  Sex: Female

DRUGS (4)
  1. SUBUTEX [Suspect]
     Active Substance: BUPRENORPHINE HYDROCHLORIDE
     Dosage: 4 MG DAILY (2 TAKES PER DAY)
     Route: 060
     Dates: start: 201701
  2. ALCOHOL. [Suspect]
     Active Substance: ALCOHOL
     Indication: ALCOHOLISM
     Dosage: UNK
     Route: 048
  3. SUBUTEX [Suspect]
     Active Substance: BUPRENORPHINE HYDROCHLORIDE
     Indication: DRUG DEPENDENCE
     Dosage: 4 MG DAILY (2 TAKES PER DAY)
     Route: 060
  4. NICOTINE. [Suspect]
     Active Substance: NICOTINE
     Indication: NICOTINE DEPENDENCE
     Dosage: UNK
     Route: 055

REACTIONS (6)
  - Inappropriate schedule of drug administration [Unknown]
  - Drug withdrawal syndrome [Recovered/Resolved]
  - Alcoholism [Unknown]
  - Alcohol withdrawal syndrome [Recovered/Resolved]
  - Drug dependence [Unknown]
  - Intentional underdose [Recovered/Resolved]
